FAERS Safety Report 8559610-2 (Version None)
Quarter: 2012Q3

REPORT INFORMATION
  Report Type: 
  Country: None (occurrence: None)
  Receive Date: 20120802
  Receipt Date: 20120731
  Transmission Date: 20120928
  Serious: Yes (Death, Other)
  Sender: FDA-Public Use
  Company Number: CN-PFIZER INC-2012028419

PATIENT
  Age: 30 Year
  Sex: Female

DRUGS (1)
  1. SUTENT [Suspect]
     Indication: RENAL CELL CARCINOMA
     Dosage: 3 TO 4 CAPSULES, 1X/DAY
     Route: 048

REACTIONS (5)
  - PALMAR-PLANTAR ERYTHRODYSAESTHESIA SYNDROME [None]
  - ASCITES [None]
  - DISEASE PROGRESSION [None]
  - RENAL CELL CARCINOMA [None]
  - PLEURAL EFFUSION [None]
